FAERS Safety Report 18864766 (Version 15)
Quarter: 2024Q4

REPORT INFORMATION
  Report Type: Spontaneous
  Country: DE (occurrence: DE)
  Receive Date: 20210209
  Receipt Date: 20241209
  Transmission Date: 20250115
  Serious: Yes (Hospitalization, Other)
  Sender: NOVARTIS
  Company Number: NVSC2021DE023497

PATIENT
  Age: 35 Year
  Sex: Female

DRUGS (3)
  1. FINGOLIMOD [Suspect]
     Active Substance: FINGOLIMOD
     Indication: Product used for unknown indication
     Dosage: UNK
     Route: 065
  2. OCREVUS [Suspect]
     Active Substance: OCRELIZUMAB
     Indication: Relapsing-remitting multiple sclerosis
     Dosage: 300 MG, 14D (FIRST AND SECOND INITIAL DOSE SUBSEQUENT DOSE ON 14/OCT/2020)
     Route: 042
     Dates: start: 20200930, end: 20201014
  3. OCREVUS [Suspect]
     Active Substance: OCRELIZUMAB
     Dosage: 600 MG, Q6MO (6TH MAINTENANCE DOSE IN OCT/2023, AND THE 7TH MAINTENANCE ON 24/APR/2024.)
     Route: 042

REACTIONS (14)
  - Multiple sclerosis relapse [Recovered/Resolved]
  - Multiple sclerosis [Not Recovered/Not Resolved]
  - Inflammation [Recovered/Resolved]
  - Headache [Recovered/Resolved]
  - COVID-19 [Recovered/Resolved]
  - Nausea [Recovered/Resolved]
  - Periodontitis [Recovered/Resolved]
  - Fatigue [Recovered/Resolved]
  - Dizziness [Recovered/Resolved]
  - Smear cervix abnormal [Recovered/Resolved]
  - Headache [Recovered/Resolved]
  - Human papilloma virus test positive [Not Recovered/Not Resolved]
  - Vaccination failure [Not Recovered/Not Resolved]
  - Fatigue [Recovered/Resolved]

NARRATIVE: CASE EVENT DATE: 20200930
